FAERS Safety Report 17358303 (Version 1)
Quarter: 2020Q1

REPORT INFORMATION
  Report Type: Spontaneous
  Country: US (occurrence: US)
  Receive Date: 20200201
  Receipt Date: 20200201
  Transmission Date: 20200409
  Serious: Yes (Other)
  Sender: FDA-Public Use
  Company Number: US-CIPLA LTD.-2016US11128

PATIENT

DRUGS (15)
  1. CITALOPRAM [Suspect]
     Active Substance: CITALOPRAM HYDROBROMIDE
     Indication: PRODUCT USED FOR UNKNOWN INDICATION
     Dosage: 10 MILLIGRAM, DAILY
     Route: 048
  2. ASPIRIN [ACETYLSALICYLIC ACID] [Concomitant]
     Active Substance: ASPIRIN
     Indication: VENTRICULAR EXTRASYSTOLES
     Dosage: 325 MILLIGRAM, DAILY
     Route: 048
  3. ASPIRIN [ACETYLSALICYLIC ACID] [Concomitant]
     Active Substance: ASPIRIN
     Indication: SUPRAVENTRICULAR TACHYCARDIA
  4. ASPIRIN [ACETYLSALICYLIC ACID] [Concomitant]
     Active Substance: ASPIRIN
     Indication: ATRIAL FIBRILLATION
  5. TESTOSTERONE. [Concomitant]
     Active Substance: TESTOSTERONE
     Dosage: 50 MG/5 G, QD (ONCE DAILY)
     Route: 061
  6. PANTOPRAZOLE [Concomitant]
     Active Substance: PANTOPRAZOLE
     Indication: PRODUCT USED FOR UNKNOWN INDICATION
     Dosage: 40 MILLIGRAM, DAILY
     Route: 048
  7. SIMVASTATIN. [Interacting]
     Active Substance: SIMVASTATIN
     Indication: PRODUCT USED FOR UNKNOWN INDICATION
     Dosage: 80 MILLIGRAM, DAILY
     Route: 048
  8. ATENOLOL. [Concomitant]
     Active Substance: ATENOLOL
     Indication: ATRIAL FIBRILLATION
  9. ATORVASTATIN [ATORVASTATIN CALCIUM] [Concomitant]
     Active Substance: ATORVASTATIN CALCIUM
     Indication: PRODUCT USED FOR UNKNOWN INDICATION
     Dosage: 40 MILLIGARM, DAILY
     Route: 048
  10. DILTIAZEM HYDROCHLORIDE. [Interacting]
     Active Substance: DILTIAZEM HYDROCHLORIDE
     Indication: ATRIAL FIBRILLATION
  11. ATENOLOL. [Concomitant]
     Active Substance: ATENOLOL
     Indication: SUPRAVENTRICULAR TACHYCARDIA
  12. EZETIMIBE. [Concomitant]
     Active Substance: EZETIMIBE
     Indication: PRODUCT USED FOR UNKNOWN INDICATION
     Dosage: 10 MILLIGRAM, DAILY
     Route: 048
  13. DILTIAZEM HYDROCHLORIDE. [Interacting]
     Active Substance: DILTIAZEM HYDROCHLORIDE
     Indication: SUPRAVENTRICULAR TACHYCARDIA
  14. ATENOLOL. [Concomitant]
     Active Substance: ATENOLOL
     Indication: VENTRICULAR EXTRASYSTOLES
     Dosage: 25 MILLIGRAM, DAILY
     Route: 048
  15. DILTIAZEM HYDROCHLORIDE. [Interacting]
     Active Substance: DILTIAZEM HYDROCHLORIDE
     Indication: VENTRICULAR EXTRASYSTOLES
     Dosage: 240 MILLIGRAM, DAILY, EXTENDED-RELEASE
     Route: 048

REACTIONS (2)
  - Drug interaction [Unknown]
  - Myoclonus [Recovering/Resolving]
